FAERS Safety Report 18242034 (Version 1)
Quarter: 2020Q3

REPORT INFORMATION
  Report Type: Spontaneous
  Country: US (occurrence: US)
  Receive Date: 20200908
  Receipt Date: 20200908
  Transmission Date: 20201103
  Serious: Yes (Other)
  Sender: FDA-Public Use
  Company Number: US-GLAXOSMITHKLINE-US2020AMR177896

PATIENT
  Sex: Male

DRUGS (1)
  1. SORIATANE [Suspect]
     Active Substance: ACITRETIN
     Indication: SKIN DISORDER
     Dosage: 25 MG

REACTIONS (1)
  - Deafness [Unknown]
